FAERS Safety Report 14182052 (Version 1)
Quarter: 2017Q4

REPORT INFORMATION
  Report Type: Spontaneous
  Country: GB (occurrence: GB)
  Receive Date: 20171113
  Receipt Date: 20171113
  Transmission Date: 20180321
  Serious: Yes (Hospitalization)
  Sender: FDA-Public Use
  Company Number: GB-ACCORD-060857

PATIENT
  Age: 58 Year
  Sex: Male

DRUGS (6)
  1. HUMULIN M3 [Concomitant]
     Active Substance: INSULIN HUMAN
  2. SIMVASTATIN. [Concomitant]
     Active Substance: SIMVASTATIN
  3. OMEPRAZOLE. [Concomitant]
     Active Substance: OMEPRAZOLE
  4. TRAMADOL/TRAMADOL HYDROCHLORIDE [Suspect]
     Active Substance: TRAMADOL HYDROCHLORIDE
     Indication: ARTHRALGIA
     Dosage: INCREASED FROM 50 MG 3 X A DAY TO 100 MG 3X/DAY
  5. RAMIPRIL. [Concomitant]
     Active Substance: RAMIPRIL
  6. IRBESARTAN. [Concomitant]
     Active Substance: IRBESARTAN

REACTIONS (4)
  - Hypoglycaemia [Recovered/Resolved]
  - Therapy cessation [None]
  - Therapy change [None]
  - Social problem [None]
